FAERS Safety Report 5610654-X (Version None)
Quarter: 2008Q1

REPORT INFORMATION
  Report Type: 
  Country: None (occurrence: None)
  Receive Date: 20080131
  Receipt Date: 20080131
  Transmission Date: 20080703
  Serious: No
  Sender: FDA-Public Use
  Company Number: None

PATIENT
  Age: 6 Year
  Sex: Female

DRUGS (2)
  1. SULFACETAMIDE SODIUM [Suspect]
     Dosage: SOLUTION/DROPS
  2. SULFAMETHOXAZOLE AND TRIMETHOPRIM [Suspect]
     Dosage: SUSPENSION

REACTIONS (2)
  - DRUG DISPENSING ERROR [None]
  - MEDICATION ERROR [None]
